FAERS Safety Report 24212875 (Version 1)
Quarter: 2024Q3

REPORT INFORMATION
  Report Type: Spontaneous
  Country: CA (occurrence: None)
  Receive Date: 20240815
  Receipt Date: 20240815
  Transmission Date: 20241017
  Serious: Yes (Other)
  Sender: ASTRAZENECA
  Company Number: 2020SF19287

PATIENT
  Sex: Female

DRUGS (7)
  1. OMEPRAZOLE [Suspect]
     Active Substance: OMEPRAZOLE
     Indication: Product used for unknown indication
     Dosage: 20 MG,1 EVERY 1 DAYS
     Route: 048
     Dates: start: 2015
  2. DICLOFENAC [Suspect]
     Active Substance: DICLOFENAC
     Indication: Product used for unknown indication
     Dosage: 50 MG,2 EVERY 1 DAYS
     Route: 048
     Dates: start: 2017, end: 20181129
  3. FOLIC ACID [Suspect]
     Active Substance: FOLIC ACID
     Indication: Product used for unknown indication
     Dosage: 5 MG,1 EVERY 1 WEEKS
     Route: 048
     Dates: start: 2018, end: 20181129
  4. CELEBREX [Concomitant]
     Active Substance: CELECOXIB
     Indication: Product used for unknown indication
     Dosage: 1 DF,2 EVERY 1 DAYS
     Route: 048
     Dates: start: 2016, end: 20181129
  5. METHOTREXATE [Concomitant]
     Active Substance: METHOTREXATE
     Indication: Product used for unknown indication
     Dosage: 15 MG ,1 EVERY 1 WEEKS
     Route: 048
     Dates: start: 2018, end: 20181129
  6. SULFASALAZINE [Concomitant]
     Active Substance: SULFASALAZINE
     Indication: Product used for unknown indication
     Dosage: 1000 MG,2 EVERY 1 DAYS
     Route: 048
     Dates: start: 201811
  7. HUMIRA [Concomitant]
     Active Substance: ADALIMUMAB
     Indication: Product used for unknown indication
     Route: 058
     Dates: start: 201809, end: 20181128

REACTIONS (1)
  - Psoriatic arthropathy [Unknown]
